FAERS Safety Report 9731975 (Version 1)
Quarter: 2013Q4

REPORT INFORMATION
  Report Type: Spontaneous
  Country: DE (occurrence: DE)
  Receive Date: 20131204
  Receipt Date: 20131204
  Transmission Date: 20140711
  Serious: Yes (Hospitalization)
  Sender: FDA-Public Use
  Company Number: DE-TAKEDA-2013TEU002723

PATIENT
  Sex: 0

DRUGS (2)
  1. ACTOS [Suspect]
     Indication: PROSTATE CANCER
     Dosage: UNK
     Dates: start: 201311
  2. AVODART [Concomitant]
     Dosage: UNK
     Dates: start: 201311

REACTIONS (2)
  - Gout [Unknown]
  - Off label use [Unknown]
